FAERS Safety Report 25060719 (Version 2)
Quarter: 2025Q1

REPORT INFORMATION
  Report Type: Spontaneous
  Country: US (occurrence: US)
  Receive Date: 20250310
  Receipt Date: 20250318
  Transmission Date: 20250409
  Serious: No
  Sender: JOHNSON AND JOHNSON
  Company Number: US-JNJFOC-20250272591

PATIENT
  Sex: Female

DRUGS (2)
  1. TRACLEER [Suspect]
     Active Substance: BOSENTAN
     Indication: Product used for unknown indication
     Route: 048
  2. TRACLEER [Suspect]
     Active Substance: BOSENTAN
     Route: 065

REACTIONS (3)
  - Liver function test abnormal [Unknown]
  - Product lot number issue [Unknown]
  - Confusional state [Unknown]
